FAERS Safety Report 25499327 (Version 1)
Quarter: 2025Q3

REPORT INFORMATION
  Report Type: Spontaneous
  Country: CA (occurrence: CA)
  Receive Date: 20250701
  Receipt Date: 20250701
  Transmission Date: 20251020
  Serious: Yes (Other)
  Sender: PFIZER
  Company Number: CA-PFIZER INC-202500130506

PATIENT
  Age: 19 Year
  Sex: Female

DRUGS (6)
  1. METHOTREXATE SODIUM [Suspect]
     Active Substance: METHOTREXATE SODIUM
     Indication: Psoriatic arthropathy
     Dosage: 20 MG, WEEKLY
     Route: 058
     Dates: start: 20181122
  2. ADALIMUMAB [Concomitant]
     Active Substance: ADALIMUMAB
     Indication: Psoriatic arthropathy
     Route: 065
     Dates: start: 202007, end: 202203
  3. CIMZIA [Concomitant]
     Active Substance: CERTOLIZUMAB PEGOL
  4. CELEBREX [Concomitant]
     Active Substance: CELECOXIB
  5. FOLIC ACID [Concomitant]
     Active Substance: FOLIC ACID
  6. VYVANSE [Concomitant]
     Active Substance: LISDEXAMFETAMINE DIMESYLATE

REACTIONS (2)
  - Condition aggravated [Not Recovered/Not Resolved]
  - Off label use [Unknown]

NARRATIVE: CASE EVENT DATE: 20181122
